FAERS Safety Report 4504553-4 (Version None)
Quarter: 2004Q4

REPORT INFORMATION
  Report Type: 
  Country: None (occurrence: None)
  Receive Date: 20041116
  Receipt Date: 20041104
  Transmission Date: 20050328
  Serious: Yes (Hospitalization, Other)
  Sender: FDA-Public Use
  Company Number: 2004089315

PATIENT
  Age: 72 Year
  Sex: Female
  Weight: 83.9154 kg

DRUGS (14)
  1. LIPITOR [Suspect]
     Indication: BLOOD CHOLESTEROL
     Dosage: 10 MG (10 MG, 1 IN 1 D)
  2. NORVASC [Suspect]
     Indication: ILL-DEFINED DISORDER
     Dosage: 5 MG (5 MG, 1 IN 1 D)
  3. AMITRIPTYLINE (AMITRIPTYLINE) [Concomitant]
  4. PROPACET 100 [Concomitant]
  5. INSULIN HUMAN INJECTION, ISOPHANE (INSULIN HUMAN INJECTION, ISOPHANE) [Concomitant]
  6. INSULIN LISPRO (INSULIN LISPRO) [Concomitant]
  7. LOSARTAN POTASSIUM [Concomitant]
  8. ASPIRIN [Concomitant]
  9. PYRIDOXINE HCL [Concomitant]
  10. OXYCODONE HYDROCHLORIDE (OXYCODONE HYDROCHLORIDE) [Concomitant]
  11. FUROSEMIDE [Concomitant]
  12. FOLIC ACID [Concomitant]
  13. METHOTREXATE [Concomitant]
  14. VALDECOXIB [Concomitant]

REACTIONS (5)
  - ARTERIAL DISORDER [None]
  - BREAST CANCER [None]
  - CORONARY ARTERY OCCLUSION [None]
  - MYOCARDIAL INFARCTION [None]
  - VEIN DISORDER [None]
